FAERS Safety Report 9990853 (Version 1)
Quarter: 2014Q1

REPORT INFORMATION
  Report Type: Report from Study
  Country: US (occurrence: US)
  Receive Date: 20140310
  Receipt Date: 20140310
  Transmission Date: 20141002
  Serious: No
  Sender: FDA-Public Use
  Company Number: US-ABBVIE-13P-163-1134920-00

PATIENT
  Age: 39 Year
  Sex: Female

DRUGS (1)
  1. HUMIRA [Suspect]
     Indication: RHEUMATOID ARTHRITIS
     Route: 058
     Dates: start: 201305, end: 201307

REACTIONS (11)
  - Dry eye [Unknown]
  - Weight increased [Unknown]
  - Sinus disorder [Unknown]
  - Fatigue [Unknown]
  - Ocular hyperaemia [Unknown]
  - Asthenopia [Unknown]
  - Asthenopia [Unknown]
  - Eye disorder [Unknown]
  - Photophobia [Unknown]
  - Abnormal sensation in eye [Unknown]
  - Insomnia [Unknown]
